FAERS Safety Report 4896264-0 (Version None)
Quarter: 2006Q1

REPORT INFORMATION
  Report Type: 
  Country: None (occurrence: None)
  Receive Date: 20060131
  Receipt Date: 20060117
  Transmission Date: 20060701
  Serious: Yes (Death, Other)
  Sender: FDA-Public Use
  Company Number: JP-JNJFOC-20060103818

PATIENT
  Age: 82 Year
  Sex: Male

DRUGS (4)
  1. ITRIZOLE [Suspect]
     Indication: PULMONARY TUBERCULOSIS
     Route: 048
     Dates: start: 20050720, end: 20060117
  2. DIGOXIN [Interacting]
     Indication: DRUG USE FOR UNKNOWN INDICATION
     Route: 048
     Dates: start: 20050614, end: 20060117
  3. ISOSORBIDE DINITRATE [Concomitant]
     Route: 065
  4. FUDOSTEINE [Concomitant]
     Route: 065

REACTIONS (3)
  - ARRHYTHMIA [None]
  - CARDIAC FAILURE [None]
  - DRUG INTERACTION [None]
